FAERS Safety Report 10991257 (Version 2)
Quarter: 2015Q2

REPORT INFORMATION
  Report Type: Spontaneous
  Country: US (occurrence: US)
  Receive Date: 20150406
  Receipt Date: 20150522
  Transmission Date: 20150821
  Serious: Yes (Hospitalization, Other)
  Sender: FDA-Public Use
  Company Number: US-GILEAD-2015-0145021

PATIENT
  Age: 60 Year
  Sex: Female

DRUGS (15)
  1. NOLVADEX                           /00388701/ [Concomitant]
     Active Substance: TAMOXIFEN CITRATE
  2. CIPROFLOXACIN                      /00697202/ [Concomitant]
  3. OLYSIO [Concomitant]
     Active Substance: SIMEPREVIR
     Indication: HEPATITIS C
     Dosage: 150 MG, QD
     Route: 048
     Dates: start: 20140628, end: 20140920
  4. LASIX [Concomitant]
     Active Substance: FUROSEMIDE
  5. ALDACTONE [Concomitant]
     Active Substance: SPIRONOLACTONE
  6. SOVALDI [Suspect]
     Active Substance: SOFOSBUVIR
     Indication: HEPATITIS C
     Dosage: 400 MG, QD
     Route: 048
     Dates: start: 20140628, end: 20140920
  7. MYLANTA                            /00036701/ [Concomitant]
  8. PROBIOTIC COMPLEX [Concomitant]
  9. PRILOSEC [Concomitant]
     Active Substance: OMEPRAZOLE MAGNESIUM
  10. DOXYCYCLINE. [Concomitant]
     Active Substance: DOXYCYCLINE
     Dosage: 100 MG, BID
     Route: 065
  11. VITAMIN D3 [Concomitant]
     Active Substance: CHOLECALCIFEROL
  12. CYANOCOBALAMIN. [Concomitant]
     Active Substance: CYANOCOBALAMIN
  13. MAALOX ANTACID [Concomitant]
     Active Substance: ALUMINUM HYDROXIDE\DIMETHICONE\MAGNESIUM HYDROXIDE
  14. PREVIDENT [Concomitant]
     Active Substance: SODIUM FLUORIDE
     Indication: DRY MOUTH
  15. SYNTHROID [Concomitant]
     Active Substance: LEVOTHYROXINE SODIUM
     Dosage: UNK

REACTIONS (6)
  - Sinus node dysfunction [Unknown]
  - Heart rate increased [Recovered/Resolved]
  - Anaemia [Unknown]
  - Heart rate decreased [Recovered/Resolved]
  - Thrombocytopenia [Unknown]
  - Atrial flutter [Unknown]

NARRATIVE: CASE EVENT DATE: 20141014
